FAERS Safety Report 7293802-8 (Version None)
Quarter: 2011Q1

REPORT INFORMATION
  Report Type: 
  Country: None (occurrence: None)
  Receive Date: 20110215
  Receipt Date: 20110201
  Transmission Date: 20110831
  Serious: Yes (Death, Hospitalization)
  Sender: FDA-Public Use
  Company Number: ES-BAYER-201027670GPV

PATIENT
  Sex: Female
  Weight: 53 kg

DRUGS (6)
  1. FUROSEMIDE [Concomitant]
  2. CARBOHYDRATES/PROTEINS/MINERALS/VITAMINS, COM [Concomitant]
     Dosage: 500 ML/DAY
  3. SORAFENIB [Suspect]
     Indication: HEPATIC NEOPLASM MALIGNANT
     Route: 048
     Dates: start: 20100526, end: 20100531
  4. OMEPRAZOLE [Concomitant]
  5. SPIRONOLACTONE [Concomitant]
  6. VITAMINA K [Concomitant]
     Dosage: 1 AMP/DAY

REACTIONS (2)
  - JAUNDICE [None]
  - ACUTE HEPATIC FAILURE [None]
